FAERS Safety Report 9106324 (Version 1)
Quarter: 2013Q1

REPORT INFORMATION
  Report Type: Spontaneous
  Country: IE (occurrence: IE)
  Receive Date: 20130221
  Receipt Date: 20130221
  Transmission Date: 20140127
  Serious: No
  Sender: FDA-Public Use
  Company Number: PHHY2013IE017054

PATIENT
  Sex: Female

DRUGS (2)
  1. TASIGNA [Suspect]
  2. KLACID [Concomitant]
     Indication: LOWER RESPIRATORY TRACT INFECTION
     Dosage: UNK
     Dates: end: 20130208

REACTIONS (2)
  - Abdominal pain upper [Unknown]
  - Vomiting [Unknown]
